FAERS Safety Report 11138928 (Version 3)
Quarter: 2016Q4

REPORT INFORMATION
  Report Type: Report from Study
  Country: GB (occurrence: GB)
  Receive Date: 20150522
  Receipt Date: 20161116
  Transmission Date: 20170206
  Serious: Yes (Death, Hospitalization)
  Sender: FDA-Public Use
  Company Number: AMAG201500378

PATIENT

DRUGS (6)
  1. RIENSO [Suspect]
     Active Substance: FERUMOXYTOL
     Dosage: 10 ML, UNK
     Route: 042
     Dates: start: 20131217, end: 20131217
  2. BUSCOPAN [Concomitant]
     Active Substance: BUTYLSCOPOLAMINE BROMIDE
     Dosage: 20 MG, UNK
     Route: 042
     Dates: start: 20130108, end: 20130109
  3. BUSCOPAN [Concomitant]
     Active Substance: BUTYLSCOPOLAMINE BROMIDE
     Dosage: 20 MG, UNK
     Route: 042
     Dates: start: 20131217, end: 20131218
  4. RIENSO [Suspect]
     Active Substance: FERUMOXYTOL
     Indication: IMAGING PROCEDURE
     Dosage: 9.3 ML, UNK
     Route: 042
     Dates: start: 20121204, end: 20121204
  5. RIENSO [Suspect]
     Active Substance: FERUMOXYTOL
     Dosage: 9.5 ML, UNK
     Route: 042
     Dates: start: 20130108, end: 20130108
  6. BUSCOPAN [Concomitant]
     Active Substance: BUTYLSCOPOLAMINE BROMIDE
     Indication: PRODUCT USED FOR UNKNOWN INDICATION
     Dosage: 20 MG, UNK
     Route: 042
     Dates: start: 20121204, end: 20121205

REACTIONS (6)
  - Cardiac arrest [Fatal]
  - Circulatory collapse [Fatal]
  - Atrioventricular block complete [Recovered/Resolved]
  - Myocardial infarction [Fatal]
  - Cardiac failure [Recovered/Resolved]
  - Atrial fibrillation [Recovered/Resolved]

NARRATIVE: CASE EVENT DATE: 20150317
